FAERS Safety Report 7128425-4 (Version None)
Quarter: 2010Q4

REPORT INFORMATION
  Report Type: 
  Country: None (occurrence: None)
  Receive Date: 20101130
  Receipt Date: 20101119
  Transmission Date: 20110411
  Serious: Yes (Other)
  Sender: FDA-Public Use
  Company Number: US-JNJFOC-20101000883

PATIENT
  Sex: Female

DRUGS (16)
  1. REMICADE [Suspect]
     Indication: CROHN'S DISEASE
     Dosage: 1-13 INFUSIONS
     Route: 042
  2. REMICADE [Suspect]
     Dosage: 14TH INFUSION
     Route: 042
  3. REMICADE [Suspect]
     Dosage: 14TH INFUSION
     Route: 042
  4. REMICADE [Suspect]
     Dosage: 1-13 INFUSIONS
     Route: 042
  5. REMICADE [Suspect]
     Dosage: 1-13 INFUSIONS
     Route: 042
  6. REMICADE [Suspect]
     Dosage: 1-13 INFUSIONS
     Route: 042
  7. REMICADE [Suspect]
     Dosage: 1-13 INFUSIONS
     Route: 042
  8. REMICADE [Suspect]
     Dosage: 1-13 INFUSIONS
     Route: 042
  9. REMICADE [Suspect]
     Dosage: 1-13 INFUSIONS
     Route: 042
  10. REMICADE [Suspect]
     Dosage: 1-13 INFUSIONS
     Route: 042
  11. REMICADE [Suspect]
     Dosage: 1-13 INFUSIONS
     Route: 042
  12. REMICADE [Suspect]
     Dosage: 1-13 INFUSIONS
     Route: 042
  13. REMICADE [Suspect]
     Dosage: 1-13 INFUSIONS
     Route: 042
  14. REMICADE [Suspect]
     Dosage: 1-13 INFUSIONS
     Route: 042
  15. REMICADE [Suspect]
     Dosage: 14TH INFUSION
     Route: 042
  16. REMICADE [Suspect]
     Dosage: 1-13 INFUSIONS
     Route: 042

REACTIONS (1)
  - MALIGNANT MELANOMA [None]
